FAERS Safety Report 23637281 (Version 3)
Quarter: 2024Q2

REPORT INFORMATION
  Report Type: Spontaneous
  Country: US (occurrence: US)
  Receive Date: 20240315
  Receipt Date: 20240619
  Transmission Date: 20240715
  Serious: Yes (Disabling)
  Sender: FDA-Public Use
  Company Number: US-002147023-NVSC2024US057056

PATIENT
  Sex: Male
  Weight: 72.25 kg

DRUGS (2)
  1. LUTATHERA [Suspect]
     Active Substance: LUTETIUM OXODOTREOTIDE LU-177
     Indication: Infusion
     Dosage: 200 MCI
     Route: 042
     Dates: start: 20240215
  2. OCTREOTIDE [Concomitant]
     Active Substance: OCTREOTIDE\OCTREOTIDE ACETATE
     Indication: Product used for unknown indication
     Dosage: 30 MG, Q4W
     Route: 030

REACTIONS (4)
  - Ill-defined disorder [Not Recovered/Not Resolved]
  - Disease progression [Unknown]
  - Hepatomegaly [Unknown]
  - Pain [Unknown]
